FAERS Safety Report 19844330 (Version 1)
Quarter: 2021Q3

REPORT INFORMATION
  Report Type: Spontaneous
  Country: US (occurrence: US)
  Receive Date: 20210917
  Receipt Date: 20210917
  Transmission Date: 20211014
  Serious: Yes (Other)
  Sender: FDA-Public Use
  Company Number: US-DRREDDYS-SPO/USA/21/0139919

PATIENT
  Age: 20 Year
  Sex: Male

DRUGS (1)
  1. ACCUTANE [Suspect]
     Active Substance: ISOTRETINOIN
     Indication: PRODUCT USED FOR UNKNOWN INDICATION
     Dosage: RMA ISSUE DATE:8 JUNE 2021 1:47:11 PM,2 JULY 2021 3:58:58 PM,2 JULY 2021 3:59:07 PM,3 AUGUST 2021 4:

REACTIONS (2)
  - Anxiety [Unknown]
  - Depression [Unknown]
